FAERS Safety Report 9612095 (Version 2)
Quarter: 2014Q1

REPORT INFORMATION
  Report Type: Spontaneous
  Country: US (occurrence: US)
  Receive Date: 20131010
  Receipt Date: 20140113
  Transmission Date: 20141002
  Serious: Yes (Other)
  Sender: FDA-Public Use
  Company Number: US-ASTELLAS-2013US009277

PATIENT
  Age: 85 Year
  Sex: Female

DRUGS (5)
  1. MYRBETRIQ [Suspect]
     Indication: NOCTURIA
     Dosage: 25 MG, UID/QD
     Route: 048
     Dates: start: 20130810
  2. FLECAINIDE [Concomitant]
     Indication: PRODUCT USED FOR UNKNOWN INDICATION
     Dosage: 6AM, 2PM, 10PM
     Route: 065
  3. BYSTOLIC [Concomitant]
     Indication: PRODUCT USED FOR UNKNOWN INDICATION
     Dosage: 2.5 MG, UID/QD
     Route: 065
  4. WARFARIN [Concomitant]
     Indication: PRODUCT USED FOR UNKNOWN INDICATION
     Dosage: UNK
     Route: 065
  5. VERAPAMIL [Concomitant]
     Indication: PRODUCT USED FOR UNKNOWN INDICATION
     Dosage: 240 MG, UID/QD
     Route: 065

REACTIONS (1)
  - Blood pressure increased [Recovered/Resolved]
